FAERS Safety Report 6751136-1 (Version None)
Quarter: 2010Q2

REPORT INFORMATION
  Report Type: 
  Country: None (occurrence: None)
  Receive Date: 20100602
  Receipt Date: 20100524
  Transmission Date: 20101027
  Serious: Yes (Hospitalization)
  Sender: FDA-Public Use
  Company Number: FR-JNJFOC-20100510242

PATIENT
  Sex: Female
  Weight: 50 kg

DRUGS (7)
  1. DURAGESIC-100 [Suspect]
     Indication: BONE PAIN
     Route: 062
  2. DURAGESIC-100 [Suspect]
     Route: 062
  3. ACTISKENAN [Suspect]
     Indication: BONE PAIN
     Route: 048
  4. REVLIMID [Suspect]
     Indication: MULTIPLE MYELOMA
     Route: 048
  5. DEXAMETHASONE [Suspect]
     Indication: MULTIPLE MYELOMA
     Route: 048
  6. KARDEGIC [Concomitant]
     Indication: THROMBOSIS PROPHYLAXIS
     Route: 048
  7. CLASTOBAN [Concomitant]
     Indication: PROPHYLAXIS
     Route: 048

REACTIONS (4)
  - CONFUSIONAL STATE [None]
  - INAPPROPRIATE SCHEDULE OF DRUG ADMINISTRATION [None]
  - MULTIPLE DRUG OVERDOSE [None]
  - RENAL IMPAIRMENT [None]
